FAERS Safety Report 6672326-2 (Version None)
Quarter: 2010Q2

REPORT INFORMATION
  Report Type: 
  Country: None (occurrence: None)
  Receive Date: 20100408
  Receipt Date: 20100331
  Transmission Date: 20101027
  Serious: Yes (Other)
  Sender: FDA-Public Use
  Company Number: US-ASTRAZENECA-2006UW23652

PATIENT
  Age: 11547 Day
  Sex: Female

DRUGS (7)
  1. SEROQUEL [Suspect]
     Indication: SLEEP DISORDER
     Dosage: 300 MG 2 QHS
     Route: 048
     Dates: start: 20040405
  2. DEPAKOTE [Concomitant]
     Dosage: 500 MG 3Q PM
  3. GEODON [Concomitant]
  4. ABILIFY [Concomitant]
     Indication: HALLUCINATION, AUDITORY
     Dosage: 30 MG TQD
  5. PAXIL [Concomitant]
     Indication: DEPRESSION
  6. TRAZODONE [Concomitant]
  7. WELLBUTRIN XL [Concomitant]
     Dosage: 150-300 MG TQD

REACTIONS (2)
  - DIABETES MELLITUS [None]
  - NEUROPATHY PERIPHERAL [None]
